FAERS Safety Report 4298601-7 (Version None)
Quarter: 2004Q1

REPORT INFORMATION
  Report Type: 
  Country: None (occurrence: None)
  Receive Date: 20040218
  Receipt Date: 20030624
  Transmission Date: 20041129
  Serious: No
  Sender: FDA-Public Use
  Company Number: US-GLAXOSMITHKLINE-A0413615A

PATIENT
  Age: 8 Year
  Sex: Male

DRUGS (4)
  1. PAXIL [Suspect]
     Indication: ANXIETY
     Route: 048
     Dates: start: 20030501
  2. ABILIFY [Concomitant]
  3. RISPERDAL [Concomitant]
  4. STRATTERA [Concomitant]

REACTIONS (2)
  - LOOSE STOOLS [None]
  - RASH GENERALISED [None]
